FAERS Safety Report 14380816 (Version 1)
Quarter: 2018Q1

REPORT INFORMATION
  Report Type: Spontaneous
  Country: US (occurrence: US)
  Receive Date: 20180112
  Receipt Date: 20180112
  Transmission Date: 20180509
  Serious: Yes (Hospitalization)
  Sender: FDA-Public Use
  Company Number: US-PFIZER INC-2018008660

PATIENT
  Sex: Female

DRUGS (1)
  1. ATROPINE SULFATE/DIPHENOXYLATE HYDROCHLORIDE [Suspect]
     Active Substance: ATROPINE SULFATE\DIPHENOXYLATE HYDROCHLORIDE
     Dosage: 3 DF, DAILY (3 PILLS A DAY)

REACTIONS (4)
  - Disorientation [Unknown]
  - Somnolence [Unknown]
  - Product use issue [None]
  - Dysarthria [Unknown]
